FAERS Safety Report 14803371 (Version 1)
Quarter: 2018Q2

REPORT INFORMATION
  Report Type: Spontaneous
  Country: US (occurrence: US)
  Receive Date: 20180425
  Receipt Date: 20180425
  Transmission Date: 20180711
  Serious: Yes (Life-Threatening, Other)
  Sender: FDA-Public Use
  Company Number: US-IPSEN BIOPHARMACEUTICALS, INC.-2018-05870

PATIENT
  Age: 60 Year
  Sex: Female

DRUGS (7)
  1. SCULPTRA [Suspect]
     Active Substance: POLYLACTIDE, L-
     Dosage: TWO VIALS
     Route: 065
     Dates: start: 20161026, end: 20161026
  2. DYSPORT [Suspect]
     Active Substance: ABOBOTULINUMTOXINA
     Dosage: NOT REPORTED
     Route: 065
     Dates: start: 20150923, end: 20150923
  3. SCULPTRA [Suspect]
     Active Substance: POLYLACTIDE, L-
     Indication: SKIN COSMETIC PROCEDURE
     Dosage: 1 VIAL
     Route: 065
     Dates: start: 20170728, end: 20170728
  4. SCULPTRA [Suspect]
     Active Substance: POLYLACTIDE, L-
     Dosage: 1 VIAL
     Route: 065
     Dates: start: 20161130, end: 20161130
  5. SCULPTRA [Suspect]
     Active Substance: POLYLACTIDE, L-
     Dosage: ONE VIAL
     Route: 065
     Dates: start: 20170111, end: 20170111
  6. DYSPORT [Suspect]
     Active Substance: ABOBOTULINUMTOXINA
     Indication: SKIN COSMETIC PROCEDURE
     Dosage: NOT REPORTED
     Route: 065
     Dates: start: 20170503, end: 20170503
  7. DYSPORT [Suspect]
     Active Substance: ABOBOTULINUMTOXINA
     Dosage: NOT REPORTED
     Route: 065
     Dates: start: 20160212, end: 20160212

REACTIONS (1)
  - Nodule [Unknown]
